FAERS Safety Report 20897683 (Version 1)
Quarter: 2022Q2

REPORT INFORMATION
  Report Type: Spontaneous
  Country: JP (occurrence: JP)
  Receive Date: 20220531
  Receipt Date: 20220531
  Transmission Date: 20220721
  Serious: Yes (Other)
  Sender: FDA-Public Use
  Company Number: JP-SA-2018SA148497

PATIENT
  Sex: Female

DRUGS (1)
  1. HERBESSER [Suspect]
     Active Substance: DILTIAZEM HYDROCHLORIDE
     Indication: Product used for unknown indication
     Route: 048

REACTIONS (4)
  - Loss of consciousness [Unknown]
  - Fall [Unknown]
  - Humerus fracture [Unknown]
  - Blood pressure decreased [Unknown]
